FAERS Safety Report 23479881 (Version 1)
Quarter: 2024Q1

REPORT INFORMATION
  Report Type: Spontaneous
  Country: US (occurrence: US)
  Receive Date: 20240205
  Receipt Date: 20240205
  Transmission Date: 20240410
  Serious: No
  Sender: FDA-Public Use
  Company Number: US-GSK-US2024AMR012826

PATIENT
  Sex: Female

DRUGS (1)
  1. FLUTICASONE PROPIONATE [Suspect]
     Active Substance: FLUTICASONE PROPIONATE
     Indication: Product used for unknown indication
     Dosage: UNK,2 PUFFS IN MORNING, 2 PUFFS IN EVENING

REACTIONS (3)
  - Dyspnoea [Unknown]
  - Product storage error [Unknown]
  - Wrong technique in product usage process [Unknown]
